FAERS Safety Report 6493357-1 (Version None)
Quarter: 2009Q4

REPORT INFORMATION
  Report Type: 
  Country: None (occurrence: None)
  Receive Date: 20091211
  Receipt Date: 20091211
  Transmission Date: 20100525
  Serious: Yes (Death)
  Sender: FDA-Public Use
  Company Number: None

PATIENT
  Age: 44 Year
  Sex: Female
  Weight: 45.5 kg

DRUGS (12)
  1. CHANTIX [Suspect]
     Indication: DEPENDENCE
     Dosage: 1 MG DAILY ORAL; LATE SUMMER 2009
     Route: 048
     Dates: start: 20090401, end: 20090101
  2. OXYCODONE [Concomitant]
  3. MORPHINE SULFATE [Concomitant]
  4. CLONAZEPAM [Concomitant]
  5. LORAZEPAM [Concomitant]
  6. ABILIFY [Concomitant]
  7. CYMBALTA [Concomitant]
  8. METHYLPHENIDATE IRITALIN [Concomitant]
  9. HYDROXYZINE [Concomitant]
  10. TRAZODONOE [Concomitant]
  11. BACLOFEN [Concomitant]
  12. METHYLPHENIDATE HCL [Concomitant]

REACTIONS (5)
  - COMPLETED SUICIDE [None]
  - EMOTIONAL DISORDER [None]
  - MENTAL DISORDER [None]
  - OVERDOSE [None]
  - SELF INJURIOUS BEHAVIOUR [None]
